FAERS Safety Report 25766188 (Version 1)
Quarter: 2025Q3

REPORT INFORMATION
  Report Type: Spontaneous
  Country: US (occurrence: US)
  Receive Date: 20250905
  Receipt Date: 20250905
  Transmission Date: 20251021
  Serious: No
  Sender: DOMPE FARMACEUTICI
  Company Number: US-FARMAPROD-202408-2893

PATIENT
  Sex: Female

DRUGS (27)
  1. OXERVATE [Suspect]
     Active Substance: CENEGERMIN-BKBJ
     Indication: Punctate keratitis
     Route: 047
     Dates: start: 20240725
  2. GINGER [Concomitant]
     Active Substance: GINGER
  3. VITAMIN D-400 [Concomitant]
  4. VITAMIN B-COMPLEX WITH VIT C [Concomitant]
  5. VITAMIN B12 [Concomitant]
     Active Substance: CYANOCOBALAMIN
  6. FERROUS BISGLYCINATE CHELATE [Concomitant]
  7. LIDOCAINE [Concomitant]
     Active Substance: LIDOCAINE
  8. DICYCLOMINE HYDROCHLORIDE [Concomitant]
     Active Substance: DICYCLOMINE HYDROCHLORIDE
  9. MONTELUKAST SODIUM [Concomitant]
     Active Substance: MONTELUKAST SODIUM
  10. CITALOPRAM HYDROBROMIDE [Concomitant]
     Active Substance: CITALOPRAM HYDROBROMIDE
  11. METHENAMINE HIPPURATE [Concomitant]
     Active Substance: METHENAMINE HIPPURATE
  12. LORAZEPAM [Concomitant]
     Active Substance: LORAZEPAM
  13. ONDANSETRON HYDROCHLORIDE [Concomitant]
     Active Substance: ONDANSETRON HYDROCHLORIDE
  14. BENZONATATE [Concomitant]
     Active Substance: BENZONATATE
  15. CEPHALEXIN [Concomitant]
     Active Substance: CEPHALEXIN
  16. PREGABALIN [Concomitant]
     Active Substance: PREGABALIN
  17. TRAMADOL HCL [Concomitant]
     Active Substance: TRAMADOL HYDROCHLORIDE
  18. FAMOTIDINE [Concomitant]
     Active Substance: FAMOTIDINE
  19. ESOMEPRAZOLE MAGNESIUM [Concomitant]
     Active Substance: ESOMEPRAZOLE MAGNESIUM
  20. ZIOPTAN [Concomitant]
     Active Substance: TAFLUPROST
  21. COSOPT PF [Concomitant]
     Active Substance: DORZOLAMIDE HYDROCHLORIDE\TIMOLOL MALEATE
  22. PRED FORTE [Concomitant]
     Active Substance: PREDNISOLONE ACETATE
  23. SYSTANE (HYPROMELLOSE 2910 (4000 MPA.S)) [Concomitant]
     Active Substance: HYPROMELLOSE 2910 (4000 MPA.S)
  24. SYSTANE (HYPROMELLOSE 2910 (4000 MPA.S)) [Concomitant]
     Active Substance: HYPROMELLOSE 2910 (4000 MPA.S)
  25. OX BILE DIGESTIVE [Concomitant]
  26. ESTROGEN CREAM-COMPOUND [Concomitant]
  27. PROGESTERONE CAPSULE-COMPOUND [Concomitant]

REACTIONS (2)
  - Eye pain [Unknown]
  - Ocular hyperaemia [Unknown]
